FAERS Safety Report 5125884-3 (Version None)
Quarter: 2006Q4

REPORT INFORMATION
  Report Type: 
  Country: None (occurrence: None)
  Receive Date: 20061012
  Receipt Date: 20060828
  Transmission Date: 20070319
  Serious: Yes (Other)
  Sender: FDA-Public Use
  Company Number: JP-JPN-A200603392

PATIENT
  Age: 51 Year
  Sex: Male
  Weight: 68 kg

DRUGS (2)
  1. ZEFIX [Suspect]
     Indication: HEPATITIS B
     Dosage: 100MG PER DAY
     Route: 048
     Dates: start: 20010914, end: 20060828
  2. HEPSERA [Suspect]
     Indication: HEPATITIS B
     Dosage: 10MG PER DAY
     Route: 048
     Dates: start: 20050207, end: 20060828

REACTIONS (3)
  - ANAEMIA [None]
  - MALAISE [None]
  - OESOPHAGEAL VARICES HAEMORRHAGE [None]
